FAERS Safety Report 15484806 (Version 1)
Quarter: 2018Q4

REPORT INFORMATION
  Report Type: Spontaneous
  Country: KR (occurrence: KR)
  Receive Date: 20181010
  Receipt Date: 20181010
  Transmission Date: 20190205
  Serious: Yes (Hospitalization, Other)
  Sender: FDA-Public Use
  Company Number: KR-HERITAGE PHARMACEUTICALS-2018HTG00226

PATIENT
  Age: 55 Year
  Sex: Female

DRUGS (3)
  1. METHIMAZOLE. [Suspect]
     Active Substance: METHIMAZOLE
     Dosage: 50 MG, 1X/DAY
     Route: 065
     Dates: start: 2016
  2. METHIMAZOLE. [Suspect]
     Active Substance: METHIMAZOLE
     Dosage: 5 MG, 1X/DAY
     Route: 065
  3. METHIMAZOLE. [Suspect]
     Active Substance: METHIMAZOLE
     Indication: THYROID HORMONES INCREASED
     Dosage: 20 MG, 1X/DAY
     Route: 065
     Dates: start: 2012, end: 2016

REACTIONS (5)
  - Secondary hypothyroidism [Recovered/Resolved]
  - Pericardial effusion [Recovered/Resolved]
  - Metabolic alkalosis [Recovered/Resolved]
  - Electrocardiogram QRS complex abnormal [Recovered/Resolved]
  - Pleural effusion [Recovered/Resolved]

NARRATIVE: CASE EVENT DATE: 2016
